FAERS Safety Report 24265002 (Version 2)
Quarter: 2024Q3

REPORT INFORMATION
  Report Type: Spontaneous
  Country: DE (occurrence: DE)
  Receive Date: 20240829
  Receipt Date: 20240830
  Transmission Date: 20241017
  Serious: Yes (Other)
  Sender: MERCK
  Company Number: DE-Merck-DE20240800183

PATIENT
  Sex: Female

DRUGS (1)
  1. KEYTRUDA [Suspect]
     Active Substance: PEMBROLIZUMAB
     Indication: Breast cancer
     Dosage: UNK

REACTIONS (4)
  - Immune-mediated encephalitis [Unknown]
  - CSF test abnormal [Unknown]
  - CSF lymphocyte count increased [Unknown]
  - Headache [Unknown]
